FAERS Safety Report 11548290 (Version 1)
Quarter: 2015Q3

REPORT INFORMATION
  Report Type: Spontaneous
  Country: US (occurrence: US)
  Receive Date: 20150903
  Receipt Date: 20150903
  Transmission Date: 20151125
  Serious: No
  Sender: FDA-Public Use
  Company Number: US-ELI_LILLY_AND_COMPANY-US201303009380

PATIENT
  Sex: Female

DRUGS (1)
  1. HUMALOG [Suspect]
     Active Substance: INSULIN LISPRO
     Route: 058

REACTIONS (6)
  - Blood glucose increased [Not Recovered/Not Resolved]
  - Cataract [Unknown]
  - Tremor [Recovered/Resolved]
  - Visual impairment [Not Recovered/Not Resolved]
  - Blood glucose decreased [Unknown]
  - Drug dose omission [Not Recovered/Not Resolved]
